FAERS Safety Report 9570390 (Version 1)
Quarter: 2013Q3

REPORT INFORMATION
  Report Type: Spontaneous
  Country: US (occurrence: US)
  Receive Date: 20130930
  Receipt Date: 20130930
  Transmission Date: 20140515
  Serious: No
  Sender: FDA-Public Use
  Company Number: US-AMGEN-USASP2013063674

PATIENT
  Age: 62 Year
  Sex: Female
  Weight: 90.7 kg

DRUGS (18)
  1. ENBREL [Suspect]
     Indication: PRODUCT USED FOR UNKNOWN INDICATION
     Dosage: 25 MG, 2 TIMES/WK
     Route: 058
  2. TRIAMTERENE/HCTZ [Concomitant]
     Dosage: UNK, 37.5-25
  3. LISINOPRIL [Concomitant]
     Dosage: 10 MG, UNK
  4. FOLIC ACID [Concomitant]
     Dosage: UNK
  5. KLOR-CON M10 [Concomitant]
     Dosage: 10 MEQ, UNK
  6. GABAPENTIN [Concomitant]
     Dosage: 100 MG, UNK
  7. NEXIUM                             /01479302/ [Concomitant]
     Dosage: 20 MG, UNK
  8. ABILIFY [Concomitant]
     Dosage: 2 MG, UNK
  9. SINGULAIR [Concomitant]
     Dosage: 10 MG, UNK
  10. OXYCODONE [Concomitant]
     Dosage: 10 MG, UNK
  11. CYCLOBENZAPRINE [Concomitant]
     Dosage: 5 MG, UNK
  12. ASPIRIN [Concomitant]
     Dosage: 81 MG, UNK
  13. FENTANYL [Concomitant]
     Dosage: 100 MCG/H, UNK
  14. ENJUVIA [Concomitant]
     Dosage: 0.3 MG, UNK
  15. CLONAZEPAM [Concomitant]
     Dosage: 0.5 MG, UNK
  16. PREDNISONE [Concomitant]
     Dosage: 5 MG, UNK
  17. METHOTREXATE [Concomitant]
     Dosage: 2.5 MG, UNK
  18. LIPITOR [Concomitant]
     Dosage: 10 MG, UNK

REACTIONS (1)
  - Therapeutic response decreased [Unknown]
